FAERS Safety Report 16863747 (Version 1)
Quarter: 2019Q3

REPORT INFORMATION
  Report Type: Report from Study
  Country: GB (occurrence: GB)
  Receive Date: 20190927
  Receipt Date: 20190927
  Transmission Date: 20191005
  Serious: Yes (Death, Life-Threatening, Hospitalization)
  Sender: FDA-Public Use
  Company Number: GB-AVEXISPRA-CTR-AVXS12019-0014

PATIENT
  Age: 5 Month
  Sex: Male
  Weight: 6.1 kg

DRUGS (3)
  1. PREDNISOLONE. [Concomitant]
     Active Substance: PREDNISOLONE
     Dosage: 5.8 MILLILITER, QD
     Route: 048
     Dates: start: 20181203
  2. HYDROCORTISONE. [Concomitant]
     Active Substance: HYDROCORTISONE
     Dosage: UNK
     Dates: start: 20181231
  3. AVXS-101 [Suspect]
     Active Substance: ONASEMNOGENE ABEPARVOVEC
     Indication: SPINAL MUSCULAR ATROPHY
     Dosage: 33 MILLILITER, SINGLE
     Route: 042
     Dates: start: 20181204, end: 20181204

REACTIONS (5)
  - Transaminases increased [Recovered/Resolved]
  - Thrombocytopenia [Recovered/Resolved]
  - Bronchiolitis [Recovered/Resolved]
  - Respiratory distress [Recovered/Resolved]
  - Leukoencephalopathy [Fatal]

NARRATIVE: CASE EVENT DATE: 20181216
